FAERS Safety Report 19489098 (Version 1)
Quarter: 2021Q3

REPORT INFORMATION
  Report Type: Spontaneous
  Country: DE (occurrence: DE)
  Receive Date: 20210703
  Receipt Date: 20210703
  Transmission Date: 20211014
  Serious: Yes (Hospitalization)
  Sender: FDA-Public Use
  Company Number: DE-TEVA-2021-DE-1928426

PATIENT
  Age: 80 Year
  Sex: Female
  Weight: 80 kg

DRUGS (13)
  1. APIXABAN [Concomitant]
     Active Substance: APIXABAN
     Dosage: 2.5 MILLIGRAM DAILY;  1?0?0?0
     Route: 048
  2. MEMANTIN [Concomitant]
     Active Substance: MEMANTINE
     Dosage: 20 MILLIGRAM DAILY; 1?0?0?0
     Route: 048
  3. AMLODIPIN [Concomitant]
     Active Substance: AMLODIPINE BESYLATE
     Dosage: 10 MILLIGRAM DAILY;  1?0?1?0
     Route: 048
  4. QUETIAPIN [Suspect]
     Active Substance: QUETIAPINE
     Dosage: 50 MILLIGRAM DAILY; 1?0?1?0
     Route: 048
  5. MOVICOL BEUTEL [Concomitant]
     Active Substance: POLYETHYLENE GLYCOL 3350\POTASSIUM CHLORIDE\SODIUM BICARBONATE\SODIUM CHLORIDE
     Dosage: 3 DOSAGE FORMS DAILY; 1?1?1?0
     Route: 048
  6. MAGNETRANS FORTE 150MG [Concomitant]
     Dosage: 150 MILLIGRAM DAILY;  1?0?0?0
     Route: 048
  7. TORASEMID [Concomitant]
     Active Substance: TORSEMIDE
     Dosage: 2 DOSAGE FORMS DAILY; 20 MG, 2?0?0?0
     Route: 048
  8. QUILONUM RETARD [Concomitant]
     Active Substance: LITHIUM CARBONATE
     Dosage: .5 DOSAGE FORMS DAILY; 12.2 MG, 0.5?0?0?0 ,MEDICATION ERRORS
     Route: 048
  9. RAMIPRIL. [Concomitant]
     Active Substance: RAMIPRIL
     Dosage: 5 MILLIGRAM DAILY; 1?0?0?0
     Route: 048
  10. SERTRALIN [Concomitant]
     Active Substance: SERTRALINE HYDROCHLORIDE
     Dosage: 100 MILLIGRAM DAILY;  1?0?0?0
     Route: 048
  11. KALIUM VERLA [Concomitant]
     Active Substance: POTASSIUM CITRATE
     Dosage: 2 DOSAGE FORMS DAILY; BAG, 2157.3|5.4 MG/G, 1?1?0?0
     Route: 048
  12. ATORVASTATIN [Concomitant]
     Active Substance: ATORVASTATIN
     Dosage: 80 MILLIGRAM DAILY; 0?0?1?0
     Route: 048
  13. LEVOTHYROXIN?NATRIUM [Concomitant]
     Active Substance: LEVOTHYROXINE SODIUM
     Dosage: 112 MICROGRAM DAILY; 1?0?0?0
     Route: 048

REACTIONS (2)
  - Depressed mood [Unknown]
  - Therapeutic drug monitoring analysis not performed [Unknown]

NARRATIVE: CASE EVENT DATE: 20200618
